FAERS Safety Report 7089750-9 (Version None)
Quarter: 2010Q4

REPORT INFORMATION
  Report Type: 
  Country: None (occurrence: None)
  Receive Date: 20101108
  Receipt Date: 20100604
  Transmission Date: 20110411
  Serious: No
  Sender: FDA-Public Use
  Company Number: US-ABBOTT-10P-163-0647405-00

PATIENT
  Sex: Male
  Weight: 102.15 kg

DRUGS (3)
  1. TRICOR [Suspect]
     Indication: BLOOD TRIGLYCERIDES INCREASED
     Route: 048
     Dates: start: 20090301, end: 20091101
  2. TRICOR [Suspect]
     Indication: HIGH DENSITY LIPOPROTEIN DECREASED
  3. METOPROLOL [Concomitant]
     Indication: HYPERTENSION
     Route: 048

REACTIONS (3)
  - ASTHENIA [None]
  - DISORIENTATION [None]
  - MUSCLE ATROPHY [None]
